FAERS Safety Report 5924109-6 (Version None)
Quarter: 2008Q4

REPORT INFORMATION
  Report Type: 
  Country: None (occurrence: None)
  Receive Date: 20081020
  Receipt Date: 20080910
  Transmission Date: 20090506
  Serious: Yes (Other)
  Sender: FDA-Public Use
  Company Number: PHHY2008BR21190

PATIENT
  Age: 46 Year
  Sex: Male
  Weight: 80 kg

DRUGS (1)
  1. EXFORGE [Suspect]
     Indication: HYPERTENSION
     Dosage: 1 TAB (160 MG VALSARTAN/5 MG AMLODIPINE BESYLATE) DAILY
     Route: 048

REACTIONS (2)
  - ENDOSCOPY ABNORMAL [None]
  - GASTRITIS HAEMORRHAGIC [None]
